FAERS Safety Report 4616406-1 (Version None)
Quarter: 2005Q1

REPORT INFORMATION
  Report Type: 
  Country: None (occurrence: None)
  Receive Date: 20050321
  Receipt Date: 20050308
  Transmission Date: 20050727
  Serious: Yes (Other)
  Sender: FDA-Public Use
  Company Number: 2005035928

PATIENT
  Sex: 0

DRUGS (3)
  1. XANAX [Suspect]
     Indication: ANXIETY
     Dosage: 2 IN 1 D, ORAL
     Route: 048
     Dates: start: 20000101
  2. XANAX [Suspect]
     Indication: DEPRESSION
     Dosage: 2 IN 1 D, ORAL
     Route: 048
     Dates: start: 20000101
  3. CARISOPRODOL [Suspect]
     Indication: ROAD TRAFFIC ACCIDENT
     Dosage: TID INTERVAL: EVERYDAY: ORAL
     Route: 048
     Dates: start: 20040101, end: 20041101

REACTIONS (2)
  - DEVELOPMENTAL DELAY [None]
  - DRUG EXPOSURE DURING PREGNANCY [None]
